FAERS Safety Report 16644118 (Version 2)
Quarter: 2019Q3

REPORT INFORMATION
  Report Type: Spontaneous
  Country: PT (occurrence: PT)
  Receive Date: 20190729
  Receipt Date: 20190729
  Transmission Date: 20191004
  Serious: Yes (Life-Threatening, Other)
  Sender: FDA-Public Use
  Company Number: PHHY2019PT174627

PATIENT
  Age: 59 Year
  Sex: Male
  Weight: 75 kg

DRUGS (3)
  1. NOLOTIL (METAMIZOLE MAGNESIUM) [Suspect]
     Active Substance: METAMIZOLE MAGNESIUM
     Indication: ANALGESIC THERAPY
     Dosage: 2000 MG, TOTAL
     Route: 048
     Dates: start: 20190716, end: 20190716
  2. DICLOFENAC [Suspect]
     Active Substance: DICLOFENAC
     Indication: ANALGESIC THERAPY
     Dosage: 75 MG, TOTAL
     Route: 030
     Dates: start: 20190716, end: 20190716
  3. COLTRAMYL [Suspect]
     Active Substance: THIOCOLCHICOSIDE
     Indication: ANALGESIC THERAPY
     Dosage: 4 MG, TOTAL
     Route: 030
     Dates: start: 20190716, end: 20190716

REACTIONS (5)
  - Tongue oedema [Recovered/Resolved]
  - Incorrect route of product administration [Recovered/Resolved]
  - Bradypnoea [Recovered/Resolved]
  - Respiratory distress [Recovered/Resolved]
  - Stridor [Recovered/Resolved]

NARRATIVE: CASE EVENT DATE: 20190716
